FAERS Safety Report 8923925 (Version 1)
Quarter: 2012Q4

REPORT INFORMATION
  Report Type: 
  Country: US (occurrence: US)
  Receive Date: 20121126
  Receipt Date: 20121126
  Transmission Date: 20130627
  Serious: No
  Sender: FDA-Public Use
  Company Number: US-009507513-1211USA008657

PATIENT
  Sex: Male

DRUGS (2)
  1. CLARITIN-D 24 HOUR [Suspect]
     Indication: HYPERSENSITIVITY
     Dosage: UNK, Unknown
     Route: 048
  2. CLARITIN-D 24 HOUR [Suspect]
     Indication: RESPIRATORY TRACT CONGESTION

REACTIONS (1)
  - Somnolence [Unknown]
